FAERS Safety Report 7474874-4 (Version None)
Quarter: 2011Q2

REPORT INFORMATION
  Report Type: 
  Country: None (occurrence: None)
  Receive Date: 20110512
  Receipt Date: 20110505
  Transmission Date: 20111010
  Serious: Yes (Hospitalization, Other)
  Sender: FDA-Public Use
  Company Number: BR-SANOFI-AVENTIS-2011SA028012

PATIENT
  Age: 87 Year
  Sex: Male
  Weight: 55 kg

DRUGS (5)
  1. QUETIAPINE FUMARATE [Concomitant]
     Indication: DEMENTIA
     Route: 048
  2. SPIRONOLACTONE [Concomitant]
     Route: 048
     Dates: start: 20110506
  3. OMEPRAZOLE [Concomitant]
     Indication: GASTRIC DISORDER
     Route: 048
     Dates: start: 20110506
  4. LANTUS [Suspect]
  5. LANTUS [Suspect]
     Indication: TYPE 2 DIABETES MELLITUS
     Route: 058

REACTIONS (9)
  - APHAGIA [None]
  - RESPIRATORY ARREST [None]
  - ASPIRATION [None]
  - ASTHENIA [None]
  - BRONCHOPNEUMONIA [None]
  - PNEUMONIA [None]
  - BLOOD PRESSURE DECREASED [None]
  - DYSPHAGIA [None]
  - BLOOD GLUCOSE INCREASED [None]
